FAERS Safety Report 12872918 (Version 2)
Quarter: 2016Q4

REPORT INFORMATION
  Report Type: Spontaneous
  Country: AT (occurrence: AT)
  Receive Date: 20161021
  Receipt Date: 20161021
  Transmission Date: 20170207
  Serious: Yes (Other)
  Sender: FDA-Public Use
  Company Number: AT-CIPLA LTD.-2016AT19537

PATIENT

DRUGS (8)
  1. DIGITOXIN [Suspect]
     Active Substance: DIGITOXIN
     Dosage: 0.07 MG, PER DAY
     Route: 065
  2. GLICLAZIDE [Suspect]
     Active Substance: GLICLAZIDE
     Dosage: 45 MG, PER DAY
     Route: 065
  3. VALPROIC ACID. [Interacting]
     Active Substance: VALPROIC ACID
     Indication: EPILEPSY
     Dosage: 1600 MG, PER 24 HOURS
     Route: 065
  4. NEBIVOLOL. [Suspect]
     Active Substance: NEBIVOLOL
     Dosage: 5 MG, PER DAY
     Route: 065
  5. LISINOPRIL. [Suspect]
     Active Substance: LISINOPRIL
     Dosage: 10 MG, PER DAY
     Route: 065
  6. AMLODIPINE [Suspect]
     Active Substance: AMLODIPINE BESYLATE
     Dosage: 10 MG, PER DAY
     Route: 065
  7. RIVAROXABAN [Interacting]
     Active Substance: RIVAROXABAN
     Indication: PROPHYLAXIS
     Dosage: 15 MG, PER DAY
     Route: 065
  8. MIRTAZAPINE. [Interacting]
     Active Substance: MIRTAZAPINE
     Dosage: 15 MG, PER DAY
     Route: 065

REACTIONS (4)
  - Drug level increased [Recovered/Resolved]
  - Coagulation time prolonged [Recovered/Resolved]
  - Drug interaction [Unknown]
  - Blood bilirubin increased [Recovered/Resolved]
